FAERS Safety Report 17701878 (Version 3)
Quarter: 2020Q4

REPORT INFORMATION
  Report Type: Report from Study
  Country: None (occurrence: US)
  Receive Date: 20200424
  Receipt Date: 20201206
  Transmission Date: 20210113
  Serious: Yes (Disabling)
  Sender: FDA-Public Use
  Company Number: US-ABBVIE-20K-163-3376897-00

PATIENT
  Age: 56 Year
  Sex: Female

DRUGS (1)
  1. HUMIRA [Suspect]
     Active Substance: ADALIMUMAB
     Indication: COLITIS ULCERATIVE
     Route: 058
     Dates: start: 201912

REACTIONS (11)
  - Gait disturbance [Not Recovered/Not Resolved]
  - Headache [Recovered/Resolved]
  - Seasonal allergy [Recovering/Resolving]
  - Headache [Not Recovered/Not Resolved]
  - Hypersensitivity [Unknown]
  - Stress [Not Recovered/Not Resolved]
  - Abdominal distension [Not Recovered/Not Resolved]
  - Glucose tolerance impaired [Recovered/Resolved]
  - Pyrexia [Not Recovered/Not Resolved]
  - Colitis [Recovering/Resolving]
  - Disability [Unknown]

NARRATIVE: CASE EVENT DATE: 201912
